FAERS Safety Report 11440871 (Version 1)
Quarter: 2015Q3

REPORT INFORMATION
  Report Type: Spontaneous
  Country: US (occurrence: None)
  Receive Date: 20150831
  Receipt Date: 20150831
  Transmission Date: 20151125
  Serious: No
  Sender: FDA-Public Use
  Company Number: None

PATIENT
  Age: 84 Year
  Sex: Male
  Weight: 76.2 kg

DRUGS (1)
  1. AMIODARONE [Suspect]
     Active Substance: AMIODARONE
     Indication: ATRIAL FIBRILLATION
     Route: 048
     Dates: start: 20150709, end: 20150803

REACTIONS (3)
  - Allergic respiratory disease [None]
  - Toxicity to various agents [None]
  - Bradycardia [None]

NARRATIVE: CASE EVENT DATE: 20150727
